FAERS Safety Report 10475306 (Version 2)
Quarter: 2014Q4

REPORT INFORMATION
  Report Type: Report from Study
  Country: MX (occurrence: MX)
  Receive Date: 20140925
  Receipt Date: 20141001
  Transmission Date: 20150528
  Serious: Yes (Death, Other)
  Sender: FDA-Public Use
  Company Number: PHHY2014MX124632

PATIENT
  Age: 32 Year
  Sex: Male
  Weight: 54 kg

DRUGS (3)
  1. GLIVEC [Suspect]
     Active Substance: IMATINIB MESYLATE
     Indication: ACUTE LYMPHOCYTIC LEUKAEMIA
     Dosage: 600 MG, UNK
  2. GLIVEC [Suspect]
     Active Substance: IMATINIB MESYLATE
     Dosage: 200 MG, UNK
     Dates: start: 20131017
  3. CYCLOSPORINE. [Concomitant]
     Active Substance: CYCLOSPORINE
     Dosage: 70 MG, UNK

REACTIONS (5)
  - Death [Fatal]
  - Infection [Unknown]
  - Acute lymphocytic leukaemia recurrent [Unknown]
  - Petechiae [Unknown]
  - Cytopenia [Unknown]

NARRATIVE: CASE EVENT DATE: 20130325
